FAERS Safety Report 8548061-2 (Version None)
Quarter: 2012Q3

REPORT INFORMATION
  Report Type: 
  Country: None (occurrence: None)
  Receive Date: 20120730
  Receipt Date: 20120724
  Transmission Date: 20120928
  Serious: Yes (Death, Other)
  Sender: FDA-Public Use
  Company Number: CA-ROCHE-GNE286539

PATIENT

DRUGS (6)
  1. CLOPIDOGREL [Suspect]
     Indication: ACUTE MYOCARDIAL INFARCTION
     Dosage: 300 MG, UNK
  2. CLOPIDOGREL [Suspect]
     Dosage: 75 MG, UNK
  3. TNKASE [Suspect]
     Indication: ACUTE MYOCARDIAL INFARCTION
     Dosage: UNK
  4. GP IIB/IIIA INHIBITOR (STUDY DRUG) [Suspect]
     Indication: ACUTE MYOCARDIAL INFARCTION
     Dosage: UNK
  5. ASPIRIN [Suspect]
     Indication: ACUTE MYOCARDIAL INFARCTION
     Dosage: UNK
  6. HEPARIN [Suspect]
     Indication: ACUTE MYOCARDIAL INFARCTION
     Dosage: UNK

REACTIONS (8)
  - CATHETER SITE HAEMORRHAGE [None]
  - CARDIAC FAILURE [None]
  - CARDIOGENIC SHOCK [None]
  - MYOCARDIAL INFARCTION [None]
  - DEATH [None]
  - HAEMORRHAGE [None]
  - MYOCARDIAL ISCHAEMIA [None]
  - HAEMORRHAGE INTRACRANIAL [None]
